FAERS Safety Report 21127060 (Version 1)
Quarter: 2022Q3

REPORT INFORMATION
  Report Type: Spontaneous
  Country: US (occurrence: US)
  Receive Date: 20220725
  Receipt Date: 20220725
  Transmission Date: 20221026
  Serious: No
  Sender: FDA-Public Use
  Company Number: US-ABBVIE-21K-163-4055707-00

PATIENT
  Age: 51 Year
  Sex: Female
  Weight: 81.266 kg

DRUGS (2)
  1. SYNTHROID [Suspect]
     Active Substance: LEVOTHYROXINE SODIUM
     Indication: Hypothyroidism
     Route: 048
     Dates: start: 201912, end: 20210402
  2. SYNTHROID [Suspect]
     Active Substance: LEVOTHYROXINE SODIUM
     Route: 048
     Dates: start: 20210422

REACTIONS (9)
  - Gastrointestinal disorder [Not Recovered/Not Resolved]
  - Feeling abnormal [Not Recovered/Not Resolved]
  - Gastrointestinal pain [Unknown]
  - Alopecia [Not Recovered/Not Resolved]
  - Abdominal pain [Not Recovered/Not Resolved]
  - Vomiting [Unknown]
  - Diarrhoea [Not Recovered/Not Resolved]
  - Hyperthyroidism [Unknown]
  - Nausea [Unknown]

NARRATIVE: CASE EVENT DATE: 20210301
